FAERS Safety Report 13057445 (Version 2)
Quarter: 2016Q4

REPORT INFORMATION
  Report Type: Spontaneous
  Country: BR (occurrence: BR)
  Receive Date: 20161223
  Receipt Date: 20161227
  Transmission Date: 20170207
  Serious: Yes (Other)
  Sender: FDA-Public Use
  Company Number: BR-AMGEN-BRASP2013100319

PATIENT
  Sex: Male
  Weight: 99 kg

DRUGS (2)
  1. ENBREL [Suspect]
     Active Substance: ETANERCEPT
     Indication: ARTHRALGIA
     Dosage: UNK
     Route: 065
     Dates: start: 20130523
  2. PREDNISONE. [Concomitant]
     Active Substance: PREDNISONE
     Dosage: UNK

REACTIONS (8)
  - Paresis [Unknown]
  - Pain [Unknown]
  - Product use issue [Unknown]
  - Injection site pain [Unknown]
  - Pallor [Unknown]
  - Pain in extremity [Unknown]
  - Oedema peripheral [Unknown]
  - Arrhythmia [Unknown]

NARRATIVE: CASE EVENT DATE: 20130523
